FAERS Safety Report 19198928 (Version 2)
Quarter: 2021Q2

REPORT INFORMATION
  Report Type: Spontaneous
  Country: US (occurrence: US)
  Receive Date: 20210429
  Receipt Date: 20210521
  Transmission Date: 20210717
  Serious: No
  Sender: FDA-Public Use
  Company Number: US-ASTRAZENECA-2021A286908

PATIENT
  Age: 20830 Day
  Sex: Female
  Weight: 72.6 kg

DRUGS (6)
  1. SYMBICORT [Suspect]
     Active Substance: BUDESONIDE\FORMOTEROL FUMARATE DIHYDRATE
     Indication: NASOPHARYNGITIS
     Dosage: TOOK FOR A COUPLE MONTHS? UNKNOWN FREQUENCY UNKNOWN
     Route: 055
     Dates: start: 2016
  2. SYMBICORT [Suspect]
     Active Substance: BUDESONIDE\FORMOTEROL FUMARATE DIHYDRATE
     Indication: NASAL CONGESTION
     Dosage: BUDESONIDE AND FORMOTEROL FUMORATE, 160/4.5MCG, 2 PUFFS TWICE A DAY UNKNOWN
     Route: 055
     Dates: start: 202103
  3. SYMBICORT [Suspect]
     Active Substance: BUDESONIDE\FORMOTEROL FUMARATE DIHYDRATE
     Indication: NASOPHARYNGITIS
     Dosage: BUDESONIDE AND FORMOTEROL FUMORATE, 160/4.5MCG, 2 PUFFS TWICE A DAY UNKNOWN
     Route: 055
     Dates: start: 202103
  4. SYMBICORT [Suspect]
     Active Substance: BUDESONIDE\FORMOTEROL FUMARATE DIHYDRATE
     Indication: NASAL CONGESTION
     Dosage: BUDESONIDE AND FORMOTEROL FUMORATE, 160/4.5MCG, 2 PUFFS TWICE A DAY UNKNOWN
     Route: 055
     Dates: start: 202104
  5. SYMBICORT [Suspect]
     Active Substance: BUDESONIDE\FORMOTEROL FUMARATE DIHYDRATE
     Indication: NASAL CONGESTION
     Dosage: TOOK FOR A COUPLE MONTHS? UNKNOWN FREQUENCY UNKNOWN
     Route: 055
     Dates: start: 2016
  6. SYMBICORT [Suspect]
     Active Substance: BUDESONIDE\FORMOTEROL FUMARATE DIHYDRATE
     Indication: NASOPHARYNGITIS
     Dosage: BUDESONIDE AND FORMOTEROL FUMORATE, 160/4.5MCG, 2 PUFFS TWICE A DAY UNKNOWN
     Route: 055
     Dates: start: 202104

REACTIONS (4)
  - Product dose omission issue [Unknown]
  - Product use issue [Unknown]
  - Asthma [Unknown]
  - Device malfunction [Unknown]

NARRATIVE: CASE EVENT DATE: 20210405
